FAERS Safety Report 24632990 (Version 1)
Quarter: 2024Q4

REPORT INFORMATION
  Report Type: Spontaneous
  Country: US (occurrence: US)
  Receive Date: 20241118
  Receipt Date: 20241118
  Transmission Date: 20250115
  Serious: No
  Sender: PERRIGO
  Company Number: US-PERRIGO-24US008897

PATIENT
  Age: 40 Year
  Sex: Female
  Weight: 62.585 kg

DRUGS (5)
  1. OPILL [Suspect]
     Active Substance: NORGESTREL
     Indication: Dysmenorrhoea
     Dosage: 0.075 MG, QD
     Route: 048
     Dates: start: 20240728, end: 20240919
  2. VITAMIN B COMPLEX [Concomitant]
     Active Substance: CYANOCOBALAMIN\DEXPANTHENOL\NIACINAMIDE\PYRIDOXINE HYDROCHLORIDE\RIBOFLAVIN 5^-PHOSPHATE SODIUM\THIA
     Indication: Supplementation therapy
     Dosage: UNKNOWN, UNKNOWN
     Route: 065
  3. HYDROXYZINE HYDROCHLORIDE [Concomitant]
     Active Substance: HYDROXYZINE HYDROCHLORIDE
     Indication: Anxiety
     Dosage: UNKNOWN, UNKNOWN
     Route: 065
     Dates: start: 202405
  4. NIACIN [Concomitant]
     Active Substance: NIACIN
     Indication: Supplementation therapy
     Dosage: UNKNOWN, UNKNOWN
     Route: 065
  5. ARNICA MONTANA EXTRACT [Concomitant]
     Indication: Contusion
     Dosage: UNKNOWN, UNKNOWN
     Route: 065

REACTIONS (4)
  - Heavy menstrual bleeding [Not Recovered/Not Resolved]
  - Menstruation delayed [Recovered/Resolved]
  - Dysmenorrhoea [Not Recovered/Not Resolved]
  - Off label use [Unknown]

NARRATIVE: CASE EVENT DATE: 20240728
